FAERS Safety Report 25631110 (Version 1)
Quarter: 2025Q3

REPORT INFORMATION
  Report Type: Spontaneous
  Country: CN (occurrence: CN)
  Receive Date: 20250801
  Receipt Date: 20250801
  Transmission Date: 20251020
  Serious: Yes (Hospitalization, Other)
  Sender: BAXTER
  Company Number: None

PATIENT
  Age: 60 Year
  Sex: Male
  Weight: 63 kg

DRUGS (7)
  1. IFOSFAMIDE [Suspect]
     Active Substance: IFOSFAMIDE
     Indication: Non-small cell lung cancer stage IV
     Dosage: 2.000000 G, QD (ONCE A DAY), IVGTT, FOR 5 DAYS (WITH 500ML NS)
     Route: 041
     Dates: start: 20250713, end: 20250717
  2. IFOSFAMIDE [Suspect]
     Active Substance: IFOSFAMIDE
     Indication: Lung neoplasm malignant
  3. SODIUM CHLORIDE [Suspect]
     Active Substance: SODIUM CHLORIDE
     Dosage: 500 ML, QD, (NS 500ML), IVGTT, FOR 5 DAYS (WITH IFOSFAMIDE 2G)
     Route: 041
     Dates: start: 20250713, end: 20250717
  4. SINTILIMAB [Suspect]
     Active Substance: SINTILIMAB
     Indication: Non-small cell lung cancer stage IV
     Dosage: 200.0000 MG, QD (INTRAVENOUS TREATMENT ONCE)
     Route: 041
     Dates: start: 20250716, end: 20250716
  5. SINTILIMAB [Suspect]
     Active Substance: SINTILIMAB
     Indication: Lung neoplasm malignant
  6. ADRIAMYCIN [Suspect]
     Active Substance: DOXORUBICIN HYDROCHLORIDE
     Indication: Non-small cell lung cancer stage IV
     Dosage: 80.00000 MG, QD, CIV FOR 72H (ROUTE: INTRAPUMP INJECTION)
     Route: 065
     Dates: start: 20250714, end: 20250714
  7. ADRIAMYCIN [Suspect]
     Active Substance: DOXORUBICIN HYDROCHLORIDE
     Indication: Lung neoplasm malignant

REACTIONS (1)
  - Myelosuppression [Unknown]

NARRATIVE: CASE EVENT DATE: 20250721
